FAERS Safety Report 5454114-8 (Version None)
Quarter: 2007Q3

REPORT INFORMATION
  Report Type: 
  Country: None (occurrence: None)
  Receive Date: 20070917
  Receipt Date: 20070228
  Transmission Date: 20080115
  Serious: Yes (Other)
  Sender: FDA-Public Use
  Company Number: US-ASTRAZENECA-2006UW07997

PATIENT
  Sex: Female
  Weight: 112.7 kg

DRUGS (6)
  1. SEROQUEL [Suspect]
     Indication: BIPOLAR DISORDER
     Route: 048
     Dates: start: 20000101
  2. SEROQUEL [Suspect]
     Indication: BIPOLAR I DISORDER
     Route: 048
     Dates: start: 20000101
  3. SEROQUEL [Suspect]
     Indication: SCHIZOPHRENIA
     Route: 048
     Dates: start: 20000101
  4. RISPERDAL [Concomitant]
     Dates: start: 20020101, end: 20040101
  5. TRILAFON [Concomitant]
     Dates: start: 20020101, end: 20040101
  6. PAXIL [Concomitant]

REACTIONS (2)
  - DIABETES MELLITUS [None]
  - SUICIDAL BEHAVIOUR [None]
